FAERS Safety Report 4713460-3 (Version None)
Quarter: 2005Q3

REPORT INFORMATION
  Report Type: 
  Country: None (occurrence: None)
  Receive Date: 20050713
  Receipt Date: 20050628
  Transmission Date: 20060218
  Serious: Yes (Other)
  Sender: FDA-Public Use
  Company Number: BE-ROCHE-410224

PATIENT
  Sex: Female
  Weight: 61 kg

DRUGS (3)
  1. ROACCUTANE [Suspect]
     Indication: ACNE
     Dosage: STRENGTH: 30MG
     Route: 048
     Dates: start: 20041115, end: 20041215
  2. ROACCUTANE [Suspect]
     Dosage: STRENGTH: 40MG
     Route: 048
     Dates: start: 20041215, end: 20050115
  3. ROACCUTANE [Suspect]
     Dosage: STRENGTH: 20MG
     Route: 048
     Dates: start: 20050615

REACTIONS (2)
  - DERMAL CYST [None]
  - HEAT RASH [None]
